FAERS Safety Report 19777405 (Version 1)
Quarter: 2021Q3

REPORT INFORMATION
  Report Type: Spontaneous
  Country: US (occurrence: US)
  Receive Date: 20210830
  Receipt Date: 20210830
  Transmission Date: 20211014
  Serious: No
  Sender: FDA-Public Use
  Company Number: None

PATIENT
  Age: 70 Year
  Sex: Female
  Weight: 104.33 kg

DRUGS (2)
  1. CEFTRIAXONE (CEFTRIAXONE NA 1GM/VIL INJ) [Suspect]
     Active Substance: CEFTRIAXONE SODIUM
     Indication: URINARY TRACT INFECTION
     Dosage: ?          OTHER ROUTE:IV?
     Dates: start: 20201202, end: 20201203
  2. NITROFURANTOIN (NITOFURANTOIN 100MG CAP) [Suspect]
     Active Substance: NITROFURANTOIN
     Indication: URINARY TRACT INFECTION
     Route: 048
     Dates: start: 20201204, end: 20201206

REACTIONS (8)
  - Blood bilirubin increased [None]
  - Aspartate aminotransferase increased [None]
  - Drug-induced liver injury [None]
  - Liver function test abnormal [None]
  - Congestive hepatopathy [None]
  - Blood alkaline phosphatase increased [None]
  - Alanine aminotransferase increased [None]
  - Gallbladder polyp [None]

NARRATIVE: CASE EVENT DATE: 20201211
